FAERS Safety Report 25436707 (Version 1)
Quarter: 2025Q2

REPORT INFORMATION
  Report Type: Spontaneous
  Country: US (occurrence: US)
  Receive Date: 20250615
  Receipt Date: 20250615
  Transmission Date: 20250716
  Serious: Yes (Other)
  Sender: MERCK SHARP & DOHME LLC
  Company Number: US-GENAES-GEN-2506-gnrhG5

PATIENT

DRUGS (2)
  1. PEMBROLIZUMAB [Suspect]
     Active Substance: PEMBROLIZUMAB
  2. PADCEV [Suspect]
     Active Substance: ENFORTUMAB VEDOTIN-EJFV

REACTIONS (1)
  - Malignant neoplasm progression [Unknown]
